FAERS Safety Report 13190518 (Version 3)
Quarter: 2017Q1

REPORT INFORMATION
  Report Type: Spontaneous
  Country: IT (occurrence: IT)
  Receive Date: 20170206
  Receipt Date: 20170217
  Transmission Date: 20170428
  Serious: Yes (Other)
  Sender: FDA-Public Use
  Company Number: PHHY2017IT017441

PATIENT
  Age: 77 Year
  Sex: Male

DRUGS (2)
  1. CICLOSPORIN [Suspect]
     Active Substance: CYCLOSPORINE
     Indication: RENAL TRANSPLANT
     Route: 065
  2. MYCOPHENOLATE [Suspect]
     Active Substance: MYCOPHENOLIC ACID
     Indication: RENAL TRANSPLANT
     Dosage: UNK
     Route: 065

REACTIONS (12)
  - Hypomagnesaemia [Recovered/Resolved]
  - Fall [Unknown]
  - Wrist fracture [Unknown]
  - Tremor [Recovered/Resolved]
  - Hypocalcaemia [Unknown]
  - Irritability [Unknown]
  - Gait disturbance [Unknown]
  - Malnutrition [Unknown]
  - Hypokalaemia [Unknown]
  - Asthenia [Unknown]
  - Balance disorder [Recovering/Resolving]
  - Decreased appetite [Unknown]
